FAERS Safety Report 12194369 (Version 1)
Quarter: 2016Q1

REPORT INFORMATION
  Report Type: Spontaneous
  Country: US (occurrence: None)
  Receive Date: 20160318
  Receipt Date: 20160318
  Transmission Date: 20160526
  Serious: No
  Sender: FDA-Public Use
  Company Number: None

PATIENT
  Sex: Female

DRUGS (3)
  1. XGEVA [Concomitant]
     Active Substance: DENOSUMAB
  2. IBRANCE [Suspect]
     Active Substance: PALBOCICLIB
     Indication: BREAST CANCER
     Route: 048
     Dates: start: 20151226
  3. FEMATA [Concomitant]

REACTIONS (1)
  - Back pain [None]

NARRATIVE: CASE EVENT DATE: 2016
